FAERS Safety Report 15284396 (Version 2)
Quarter: 2018Q4

REPORT INFORMATION
  Report Type: Spontaneous
  Country: JP (occurrence: JP)
  Receive Date: 20180816
  Receipt Date: 20181012
  Transmission Date: 20190204
  Serious: Yes (Other)
  Sender: FDA-Public Use
  Company Number: JP-SA-2018SA156047

PATIENT
  Age: 80 Year
  Sex: Female

DRUGS (1)
  1. ZOLPIDEM TARTRATE. [Suspect]
     Active Substance: ZOLPIDEM TARTRATE
     Indication: SLEEP DISORDER
     Dosage: UNKNOWN
     Route: 048

REACTIONS (7)
  - Anaemia [Unknown]
  - Malaise [Unknown]
  - Respiratory failure [Unknown]
  - Oxygen saturation decreased [Unknown]
  - Cough [Unknown]
  - Pulmonary alveolar haemorrhage [Unknown]
  - Pneumothorax [Unknown]
